APPROVED DRUG PRODUCT: DIANEAL LOW CALCIUM W/DEXTROSE 3.5% IN PLASTIC CONTAINER
Active Ingredient: CALCIUM CHLORIDE; DEXTROSE; MAGNESIUM CHLORIDE; SODIUM CHLORIDE; SODIUM LACTATE
Strength: 18.3MG/100ML;3.5GM/100ML;5.08MG/100ML;538MG/100ML;448MG/100ML
Dosage Form/Route: SOLUTION;INTRAPERITONEAL
Application: N017512 | Product #014
Applicant: VANTIVE US HEALTHCARE LLC
Approved: Jul 11, 1990 | RLD: Yes | RS: No | Type: RX